FAERS Safety Report 5725364-8 (Version None)
Quarter: 2008Q2

REPORT INFORMATION
  Report Type: 
  Country: None (occurrence: None)
  Receive Date: 20080429
  Receipt Date: 20080414
  Transmission Date: 20081010
  Serious: Yes (Death, Other)
  Sender: FDA-Public Use
  Company Number: 47408

PATIENT
  Age: 53 Year
  Sex: Female

DRUGS (1)
  1. KETOROLAC TROMETHAMINE [Suspect]

REACTIONS (20)
  - ANAPHYLACTIC REACTION [None]
  - BRAIN OEDEMA [None]
  - CEREBRAL ATROPHY [None]
  - COMPLETED SUICIDE [None]
  - EOSINOPHILIA [None]
  - ERYTHEMA [None]
  - FACE OEDEMA [None]
  - HEPATIC CONGESTION [None]
  - INCORRECT DOSE ADMINISTERED [None]
  - INFLAMMATION [None]
  - LARYNGEAL OEDEMA [None]
  - LUNG DISORDER [None]
  - OEDEMA MUCOSAL [None]
  - PETECHIAE [None]
  - PHARYNGEAL OEDEMA [None]
  - PLEURAL DISORDER [None]
  - PULMONARY CONGESTION [None]
  - PULMONARY OEDEMA [None]
  - SKIN EXFOLIATION [None]
  - SPLEEN CONGESTION [None]
